FAERS Safety Report 16091869 (Version 1)
Quarter: 2019Q1

REPORT INFORMATION
  Report Type: Report from Study
  Country: US (occurrence: US)
  Receive Date: 20190319
  Receipt Date: 20190319
  Transmission Date: 20190418
  Serious: Yes (Hospitalization)
  Sender: FDA-Public Use
  Company Number: US-EISAI MEDICAL RESEARCH-EC-2019-053586

PATIENT
  Age: 82 Year
  Sex: Female
  Weight: 67.9 kg

DRUGS (1)
  1. ERIBULIN [Suspect]
     Active Substance: ERIBULIN
     Indication: BREAST CANCER METASTATIC
     Route: 042
     Dates: start: 20160527, end: 20160722

REACTIONS (3)
  - Deep vein thrombosis [Recovered/Resolved]
  - Pneumonia [Recovered/Resolved with Sequelae]
  - Pseudomeningocele [Recovered/Resolved with Sequelae]

NARRATIVE: CASE EVENT DATE: 20160617
